FAERS Safety Report 22016140 (Version 1)
Quarter: 2023Q1

REPORT INFORMATION
  Report Type: Spontaneous
  Country: US (occurrence: US)
  Receive Date: 20230221
  Receipt Date: 20230221
  Transmission Date: 20230417
  Serious: Yes (Other)
  Sender: FDA-Public Use
  Company Number: US-002147023-NVSC2023US037107

PATIENT
  Age: 34 Year
  Sex: Female
  Weight: 35.492 kg

DRUGS (9)
  1. AZITHROMYCIN [Suspect]
     Active Substance: AZITHROMYCIN
     Indication: Disseminated mycobacterium avium complex infection
     Dosage: UNK (FROM 15 OCT TO 19 OCT)
     Route: 065
  2. AZITHROMYCIN [Suspect]
     Active Substance: AZITHROMYCIN
     Dosage: UNK, (FROM 21 OCT TO 05 DEC)
     Route: 065
  3. AZITHROMYCIN [Suspect]
     Active Substance: AZITHROMYCIN
     Dosage: UNK (FROM 19 DEC)
     Route: 065
  4. RIFABUTIN [Suspect]
     Active Substance: RIFABUTIN
     Indication: Disseminated mycobacterium avium complex infection
     Dosage: UNK (FROM 28 OCT TO 03 DEC)
     Route: 065
  5. RIFABUTIN [Suspect]
     Active Substance: RIFABUTIN
     Dosage: UNK (FROM 19 DEC)
     Route: 065
  6. ETHAMBUTOL [Suspect]
     Active Substance: ETHAMBUTOL HYDROCHLORIDE
     Indication: Disseminated mycobacterium avium complex infection
     Dosage: UNK (FROM 21 OCT TO 05 DEC)
     Route: 065
  7. ETHAMBUTOL [Suspect]
     Active Substance: ETHAMBUTOL HYDROCHLORIDE
     Dosage: UNK (FROM 19 DEC)
     Route: 065
  8. AMIKACIN [Suspect]
     Active Substance: AMIKACIN
     Indication: Disseminated mycobacterium avium complex infection
     Dosage: UNK(FROM 25 OCT TO 05 DEC)
     Route: 065
  9. AMIKACIN [Suspect]
     Active Substance: AMIKACIN
     Dosage: UNK (FROM 19 DEC TO 06 FEB)
     Route: 065

REACTIONS (6)
  - HIV infection [Unknown]
  - Spinal cord abscess [Unknown]
  - Bronchopulmonary aspergillosis [Unknown]
  - Deafness [Unknown]
  - Bone marrow disorder [Unknown]
  - Bacterial test positive [Unknown]
